FAERS Safety Report 19626457 (Version 1)
Quarter: 2021Q3

REPORT INFORMATION
  Report Type: Spontaneous
  Country: CN (occurrence: CN)
  Receive Date: 20210729
  Receipt Date: 20210729
  Transmission Date: 20211014
  Serious: Yes (Other)
  Sender: FDA-Public Use
  Company Number: CN-PFIZER INC-2021847634

PATIENT
  Age: 23 Day
  Sex: Male
  Weight: .97 kg

DRUGS (6)
  1. MEROPENEM. [Suspect]
     Active Substance: MEROPENEM
     Indication: NECROTISING COLITIS
  2. MEROPENEM. [Suspect]
     Active Substance: MEROPENEM
     Indication: KLEBSIELLA SEPSIS
     Dosage: UNK
     Dates: start: 2020, end: 2020
  3. CAFFEINE. [Concomitant]
     Active Substance: CAFFEINE
     Dosage: UNK
  4. SULPERAZONE [Concomitant]
     Active Substance: CEFOPERAZONE SODIUM\SULBACTAM SODIUM
     Indication: EVIDENCE BASED TREATMENT
     Dosage: UNK
  5. VANCOMYCIN [Suspect]
     Active Substance: VANCOMYCIN
     Indication: KLEBSIELLA SEPSIS
     Dosage: 15 MG/KG, 2X/DAY, (15 MG/KG, IVGTT, Q12H)
     Route: 042
     Dates: start: 2020, end: 2020
  6. VANCOMYCIN [Suspect]
     Active Substance: VANCOMYCIN
     Indication: NECROTISING COLITIS

REACTIONS (4)
  - Drug ineffective [Recovered/Resolved]
  - Anaemia neonatal [Recovering/Resolving]
  - Thrombocytopenia neonatal [Recovered/Resolved]
  - Off label use [Unknown]

NARRATIVE: CASE EVENT DATE: 2020
